FAERS Safety Report 11666198 (Version 3)
Quarter: 2015Q4

REPORT INFORMATION
  Report Type: Report from Study
  Country: JM (occurrence: JM)
  Receive Date: 20151027
  Receipt Date: 20151106
  Transmission Date: 20160304
  Serious: Yes (Death, Other)
  Sender: FDA-Public Use
  Company Number: PHHY2015JM139414

PATIENT
  Age: 36 Year
  Sex: Male
  Weight: 79.4 kg

DRUGS (5)
  1. GLIVEC [Suspect]
     Active Substance: IMATINIB MESYLATE
     Indication: CHRONIC MYELOID LEUKAEMIA
     Dosage: 400 MG, QD
     Route: 065
     Dates: start: 20050408
  2. GLIVEC [Suspect]
     Active Substance: IMATINIB MESYLATE
     Dosage: 400 MG, BID
     Route: 065
     Dates: start: 20050408
  3. HYDROXYUREA. [Concomitant]
     Active Substance: HYDROXYUREA
     Indication: PRODUCT USED FOR UNKNOWN INDICATION
     Dosage: 1 G, TID
     Route: 048
  4. ALLOPURINOL. [Concomitant]
     Active Substance: ALLOPURINOL
     Indication: PRODUCT USED FOR UNKNOWN INDICATION
     Dosage: 300 MG, BID
     Route: 048
  5. GLIVEC [Suspect]
     Active Substance: IMATINIB MESYLATE
     Dosage: 600 MG ON MONDAY,WEDNESDAY,FRIDAY, SUNDAY; AND 400 MG ON TUESDAY,THURSDAY,SATURDAY
     Route: 065

REACTIONS (24)
  - Chronic myeloid leukaemia [Fatal]
  - Abdominal pain [Fatal]
  - Splenomegaly [Unknown]
  - Pleural effusion [Unknown]
  - Hepatic function abnormal [Unknown]
  - Vomiting [Unknown]
  - Diarrhoea [Unknown]
  - Splenic rupture [Fatal]
  - Constipation [Unknown]
  - Apnoeic attack [Unknown]
  - Flatulence [Unknown]
  - Splenic infarction [Fatal]
  - Leukostasis syndrome [Fatal]
  - Malignant neoplasm progression [Fatal]
  - Body temperature increased [Unknown]
  - Coagulopathy [Fatal]
  - Haemothorax [Unknown]
  - Hypersplenism [Unknown]
  - Vessel puncture site haemorrhage [Unknown]
  - Presyncope [Unknown]
  - Haematuria [Unknown]
  - Haemorrhage [Fatal]
  - Respiratory distress [Unknown]
  - Decreased appetite [Unknown]

NARRATIVE: CASE EVENT DATE: 20120907
